FAERS Safety Report 21009551 (Version 1)
Quarter: 2022Q2

REPORT INFORMATION
  Report Type: Spontaneous
  Country: US (occurrence: None)
  Receive Date: 20220625
  Receipt Date: 20220625
  Transmission Date: 20220720
  Serious: Yes (Disabling, Other)
  Sender: FDA-Public Use
  Company Number: None

PATIENT
  Age: 51 Year
  Sex: Male
  Weight: 91.8 kg

DRUGS (5)
  1. CIPROFLOXACIN [Suspect]
     Active Substance: CIPROFLOXACIN
     Indication: Limb injury
     Dosage: OTHER QUANTITY : 20 TABLET(S)?FREQUENCY : TWICE A DAY?
     Route: 048
  2. CIPROFLOXACIN [Suspect]
     Active Substance: CIPROFLOXACIN
     Indication: Wound
  3. FLUVOXAMINE [Concomitant]
     Active Substance: FLUVOXAMINE
  4. QUETIAPINE [Concomitant]
     Active Substance: QUETIAPINE
  5. VITAMINS [Concomitant]
     Active Substance: VITAMINS

REACTIONS (29)
  - Diarrhoea [None]
  - Abdominal pain [None]
  - Rash pruritic [None]
  - Dry skin [None]
  - Urticaria [None]
  - Neuralgia [None]
  - Pain in extremity [None]
  - Arthralgia [None]
  - Pain in extremity [None]
  - Pruritus [None]
  - Proctalgia [None]
  - Anorectal disorder [None]
  - Pruritus [None]
  - Dermatitis contact [None]
  - Dermatitis contact [None]
  - Hypersensitivity [None]
  - Flatulence [None]
  - Flatulence [None]
  - Eructation [None]
  - Chest pain [None]
  - Aortic valve disease [None]
  - Fatigue [None]
  - Depression [None]
  - Arthralgia [None]
  - Arthralgia [None]
  - Pain in extremity [None]
  - Hypertension [None]
  - Heart rate irregular [None]
  - Heart rate increased [None]

NARRATIVE: CASE EVENT DATE: 20210916
